FAERS Safety Report 16590849 (Version 1)
Quarter: 2019Q3

REPORT INFORMATION
  Report Type: Spontaneous
  Country: US (occurrence: US)
  Receive Date: 20190604
  Receipt Date: 20190604
  Transmission Date: 20191004
  Serious: Yes (Hospitalization)
  Sender: FDA-Public Use
  Company Number: None

PATIENT
  Sex: Female

DRUGS (8)
  1. TYKERB [Suspect]
     Active Substance: LAPATINIB DITOSYLATE
     Indication: DRUG THERAPY
     Route: 048
     Dates: start: 20190510
  2. ATORVASTATIN [Concomitant]
     Active Substance: ATORVASTATIN
  3. KEPPRA [Concomitant]
     Active Substance: LEVETIRACETAM
  4. PROPRANOLOL [Suspect]
     Active Substance: PROPRANOLOL HYDROCHLORIDE
  5. ZOFRAN [Concomitant]
     Active Substance: ONDANSETRON HYDROCHLORIDE
  6. ZOLPIDEM [Concomitant]
     Active Substance: ZOLPIDEM TARTRATE
  7. AMLODIPINE [Concomitant]
     Active Substance: AMLODIPINE BESYLATE
  8. DEXAMETHASON [Concomitant]
     Active Substance: DEXAMETHASONE

REACTIONS (3)
  - Dizziness [None]
  - Fatigue [None]
  - Fall [None]
